FAERS Safety Report 6604403-6 (Version None)
Quarter: 2010Q1

REPORT INFORMATION
  Report Type: 
  Country: None (occurrence: None)
  Receive Date: 20100226
  Receipt Date: 20091006
  Transmission Date: 20100710
  Serious: No
  Sender: FDA-Public Use
  Company Number: A0808688A

PATIENT
  Age: 39 Year
  Sex: Female

DRUGS (2)
  1. LAMICTAL CD [Suspect]
     Dosage: 12.5MG PER DAY
     Route: 048
     Dates: start: 20090916, end: 20090921
  2. KLONOPIN [Concomitant]
     Dosage: .5MG TWICE PER DAY
     Route: 048
     Dates: start: 20090916, end: 20090922

REACTIONS (4)
  - BLISTER [None]
  - HYPERSENSITIVITY [None]
  - OEDEMA PERIPHERAL [None]
  - RASH VESICULAR [None]
